FAERS Safety Report 9639720 (Version 1)
Quarter: 2013Q4

REPORT INFORMATION
  Report Type: Spontaneous
  Country: FR (occurrence: FR)
  Receive Date: 20131023
  Receipt Date: 20131023
  Transmission Date: 20140711
  Serious: Yes (Hospitalization)
  Sender: FDA-Public Use
  Company Number: FR-BRISTOL-MYERS SQUIBB COMPANY-19544972

PATIENT
  Age: 5 Decade
  Sex: Female

DRUGS (1)
  1. SPRYCEL [Suspect]
     Dates: end: 201308

REACTIONS (1)
  - Encephalitis [Unknown]
